FAERS Safety Report 8499480-4 (Version None)
Quarter: 2012Q3

REPORT INFORMATION
  Report Type: 
  Country: None (occurrence: None)
  Receive Date: 20120710
  Receipt Date: 20120703
  Transmission Date: 20120928
  Serious: Yes (Other)
  Sender: FDA-Public Use
  Company Number: IN-JNJFOC-20120601447

PATIENT
  Sex: Male
  Weight: 59 kg

DRUGS (5)
  1. MESALAMINE [Concomitant]
     Indication: COLITIS ULCERATIVE
     Route: 048
     Dates: start: 20080307
  2. VITAMIN B COMPLEX CAP [Concomitant]
     Route: 048
     Dates: start: 20080707
  3. GOLIMUMAB [Suspect]
     Indication: COLITIS ULCERATIVE
     Route: 058
     Dates: end: 20120505
  4. GOLIMUMAB [Suspect]
     Route: 058
     Dates: start: 20091015
  5. GOLIMUMAB [Suspect]
     Route: 058
     Dates: start: 20120411

REACTIONS (2)
  - PLEURAL EFFUSION [None]
  - TUBERCULOSIS [None]
